FAERS Safety Report 19873628 (Version 1)
Quarter: 2021Q3

REPORT INFORMATION
  Report Type: Spontaneous
  Country: US (occurrence: US)
  Receive Date: 20210923
  Receipt Date: 20210923
  Transmission Date: 20211014
  Serious: Yes (Other)
  Sender: FDA-Public Use
  Company Number: None

PATIENT
  Age: 75 Year
  Sex: Female
  Weight: 67.5 kg

DRUGS (1)
  1. METOPROLOL SUCC ER TB 100MG [Suspect]
     Active Substance: METOPROLOL SUCCINATE
     Dates: start: 20200201, end: 20200601

REACTIONS (3)
  - Eating disorder [None]
  - Weight decreased [None]
  - Abdominal pain upper [None]

NARRATIVE: CASE EVENT DATE: 20210611
